FAERS Safety Report 19207244 (Version 3)
Quarter: 2022Q1

REPORT INFORMATION
  Report Type: Spontaneous
  Country: US (occurrence: None)
  Receive Date: 20210501
  Receipt Date: 20220331
  Transmission Date: 20220423
  Serious: Yes (Other)
  Sender: FDA-Public Use
  Company Number: 2021A357760

PATIENT
  Age: 46 Year
  Sex: Male
  Weight: 49.9 kg

DRUGS (56)
  1. NEXIUM [Suspect]
     Active Substance: ESOMEPRAZOLE MAGNESIUM
     Indication: Gastrooesophageal reflux disease
     Route: 048
     Dates: start: 2008, end: 2019
  2. NEXIUM [Suspect]
     Active Substance: ESOMEPRAZOLE MAGNESIUM
     Indication: Gastrooesophageal reflux disease
     Route: 048
     Dates: start: 201007, end: 201504
  3. AMLODIPINE [Concomitant]
     Active Substance: AMLODIPINE BESYLATE
     Indication: Blood pressure diastolic increased
  4. CLONIDINE [Concomitant]
     Active Substance: CLONIDINE
  5. HYDRALAZINE [Concomitant]
     Active Substance: HYDRALAZINE HYDROCHLORIDE
  6. DOXAZOSIN [Concomitant]
     Active Substance: DOXAZOSIN MESYLATE
  7. PROAIR HFA [Concomitant]
     Active Substance: ALBUTEROL SULFATE
  8. AZITHROMYCIN [Concomitant]
     Active Substance: AZITHROMYCIN
  9. PREDNISONE [Concomitant]
     Active Substance: PREDNISONE
  10. CLINDAMYCIN [Concomitant]
     Active Substance: CLINDAMYCIN
  11. ACETAMINOPHEN/COD [Concomitant]
  12. AMOXICILLIN\CLAVULANATE POTASSIUM [Concomitant]
     Active Substance: AMOXICILLIN\CLAVULANATE POTASSIUM
  13. CREON [Concomitant]
     Active Substance: PANCRELIPASE AMYLASE\PANCRELIPASE LIPASE\PANCRELIPASE PROTEASE
  14. TRAMADOL [Concomitant]
     Active Substance: TRAMADOL
  15. ACETAMINOPHEN\HYDROCODONE [Concomitant]
     Active Substance: ACETAMINOPHEN\HYDROCODONE
  16. MIRTAZAPINE [Concomitant]
     Active Substance: MIRTAZAPINE
  17. Q TUSSIN [Concomitant]
  18. AMLODIPINE BESYLATE [Concomitant]
     Active Substance: AMLODIPINE BESYLATE
  19. CALCIUM ACETATE [Concomitant]
     Active Substance: CALCIUM ACETATE
  20. CEPHALEXIN [Concomitant]
     Active Substance: CEPHALEXIN
  21. SODIUM BICARBONATE [Concomitant]
     Active Substance: SODIUM BICARBONATE
  22. CIPROFLOXACIN [Concomitant]
     Active Substance: CIPROFLOXACIN
  23. ONDANSETRON [Concomitant]
     Active Substance: ONDANSETRON
  24. METRONIDAZOLE [Concomitant]
     Active Substance: METRONIDAZOLE
  25. NITROGLYCERIN [Concomitant]
     Active Substance: NITROGLYCERIN
  26. VITAMIN D [Concomitant]
     Active Substance: VITAMIN D NOS
  27. PROCRIT [Concomitant]
     Active Substance: ERYTHROPOIETIN
  28. FUROSEMIDE [Concomitant]
     Active Substance: FUROSEMIDE
  29. MAGNESIUM OXIDE [Concomitant]
     Active Substance: MAGNESIUM OXIDE
  30. ANTACID [Concomitant]
     Active Substance: ALUMINUM HYDROXIDE\CALCIUM CARBONATE\DIMETHICONE\MAGNESIUM HYDROXIDE
  31. CALCIUM [Concomitant]
     Active Substance: CALCIUM
  32. VITAMINS [Concomitant]
     Active Substance: VITAMINS
  33. BACLOFEN [Concomitant]
     Active Substance: BACLOFEN
  34. BUDESONIDE [Concomitant]
     Active Substance: BUDESONIDE
  35. ZENPEP [Concomitant]
     Active Substance: PANCRELIPASE AMYLASE\PANCRELIPASE LIPASE\PANCRELIPASE PROTEASE
  36. FOLIC ACID [Concomitant]
     Active Substance: FOLIC ACID
  37. FERROUS SULFATE [Concomitant]
     Active Substance: FERROUS SULFATE
  38. VITAMIN B COMPLEX [Concomitant]
     Active Substance: CYANOCOBALAMIN\DEXPANTHENOL\NIACINAMIDE\PYRIDOXINE HYDROCHLORIDE\RIBOFLAVIN 5^-PHOSPHATE SODIUM\THIA
  39. CYANOCOBALAMIN\FOLIC ACID\PYRIDOXINE HYDROCHLORIDE [Concomitant]
     Active Substance: CYANOCOBALAMIN\FOLIC ACID\PYRIDOXINE HYDROCHLORIDE
  40. METOCLOPRAMIDE [Concomitant]
     Active Substance: METOCLOPRAMIDE
  41. LORAZEPAM [Concomitant]
     Active Substance: LORAZEPAM
  42. DICYCLOMINE [Concomitant]
     Active Substance: DICYCLOMINE HYDROCHLORIDE
  43. CIALIS [Concomitant]
     Active Substance: TADALAFIL
  44. KIONEX [Concomitant]
     Active Substance: SODIUM POLYSTYRENE SULFONATE
  45. ADVAIR HFA [Concomitant]
     Active Substance: FLUTICASONE PROPIONATE\SALMETEROL XINAFOATE
  46. LEVOFLOXACIN [Concomitant]
     Active Substance: LEVOFLOXACIN
  47. CHANTIX [Concomitant]
     Active Substance: VARENICLINE TARTRATE
  48. MEGESTROL ACETATE [Concomitant]
     Active Substance: MEGESTROL ACETATE
  49. FENTANYL [Concomitant]
     Active Substance: FENTANYL
  50. MOVIPREP [Concomitant]
     Active Substance: ASCORBIC ACID\POLYETHYLENE GLYCOL 3350\POTASSIUM CHLORIDE\SODIUM ASCORBATE\SODIUM CHLORIDE\SODIUM SU
  51. IBUPROFEN [Concomitant]
     Active Substance: IBUPROFEN
  52. CEFADROXIL [Concomitant]
     Active Substance: CEFADROXIL
  53. ZOLPIDEM [Concomitant]
     Active Substance: ZOLPIDEM TARTRATE
  54. TOPROL XL [Concomitant]
     Active Substance: METOPROLOL SUCCINATE
  55. ARANESP [Concomitant]
     Active Substance: DARBEPOETIN ALFA
  56. METOPROLOL SUCCINATE [Concomitant]
     Active Substance: METOPROLOL SUCCINATE

REACTIONS (6)
  - Chronic kidney disease [Not Recovered/Not Resolved]
  - End stage renal disease [Not Recovered/Not Resolved]
  - Acute kidney injury [Unknown]
  - Nephrogenic anaemia [Unknown]
  - Renal failure [Unknown]
  - Hyperparathyroidism secondary [Unknown]

NARRATIVE: CASE EVENT DATE: 20140101
